FAERS Safety Report 22169202 (Version 1)
Quarter: 2023Q2

REPORT INFORMATION
  Report Type: Report from Study
  Country: US (occurrence: US)
  Receive Date: 20230404
  Receipt Date: 20230404
  Transmission Date: 20230722
  Serious: Yes (Other)
  Sender: FDA-Public Use
  Company Number: US-ABBVIE-4713944

PATIENT
  Sex: Female

DRUGS (1)
  1. HUMIRA [Suspect]
     Active Substance: ADALIMUMAB
     Indication: Rheumatoid arthritis
     Dosage: CITRATE FREE?FROM STRENGTH WAS 40 MILLIGRAMS
     Route: 058
     Dates: start: 20221205

REACTIONS (2)
  - Dermal cyst [Recovering/Resolving]
  - Arthritis [Unknown]
